FAERS Safety Report 10221737 (Version 1)
Quarter: 2014Q2

REPORT INFORMATION
  Report Type: Spontaneous
  Country: GB (occurrence: GB)
  Receive Date: 20140606
  Receipt Date: 20140606
  Transmission Date: 20141212
  Serious: Yes (Death)
  Sender: FDA-Public Use
  Company Number: GB-GLAXOSMITHKLINE-A1075989A

PATIENT
  Age: 69 Year
  Sex: Male

DRUGS (1)
  1. OFATUMUMAB [Suspect]
     Indication: PRODUCT USED FOR UNKNOWN INDICATION
     Route: 065

REACTIONS (6)
  - Pneumonia [Fatal]
  - Herpes zoster [Unknown]
  - Infusion related reaction [Unknown]
  - Disease progression [Unknown]
  - Infection [Unknown]
  - Blood product transfusion dependent [Unknown]
